FAERS Safety Report 25551246 (Version 1)
Quarter: 2025Q3

REPORT INFORMATION
  Report Type: Spontaneous
  Country: CA (occurrence: CA)
  Receive Date: 20250714
  Receipt Date: 20250714
  Transmission Date: 20251020
  Serious: Yes (Other)
  Sender: MYLAN
  Company Number: CA-MYLANLABS-2025M1057888

PATIENT
  Age: 51 Year
  Sex: Male
  Weight: 104.31 kg

DRUGS (3)
  1. PHENYTOIN [Suspect]
     Active Substance: PHENYTOIN
     Indication: Epilepsy
     Dosage: 200 MILLIGRAM, BID (2 EVERY 1 DAYS)
  2. OXCARBAZEPINE [Suspect]
     Active Substance: OXCARBAZEPINE
     Indication: Epilepsy
     Dosage: 600 MILLIGRAM, TID (3 EVERY 1 DAYS)
  3. PRIMIDONE [Concomitant]
     Active Substance: PRIMIDONE

REACTIONS (3)
  - Seizure [Unknown]
  - Diplopia [Unknown]
  - Product substitution issue [Unknown]
